FAERS Safety Report 8375237-X (Version None)
Quarter: 2012Q2

REPORT INFORMATION
  Report Type: 
  Country: None (occurrence: None)
  Receive Date: 20120522
  Receipt Date: 20120516
  Transmission Date: 20120825
  Serious: Yes (Other)
  Sender: FDA-Public Use
  Company Number: US-AMGEN-USASP2012030878

PATIENT
  Age: 56 Year
  Sex: Male

DRUGS (3)
  1. ENBREL [Suspect]
     Indication: RHEUMATOID ARTHRITIS
     Dosage: 25 MG, 2 TIMES/WK
     Dates: start: 19980101
  2. METHOTREXATE [Concomitant]
     Dosage: 1 MG, UNK
     Dates: start: 20120401
  3. HUMIRA [Concomitant]
     Dosage: UNK

REACTIONS (8)
  - GINGIVAL INFECTION [None]
  - CATARACT [None]
  - DRUG INEFFECTIVE [None]
  - OSTEONECROSIS OF JAW [None]
  - RHEUMATOID ARTHRITIS [None]
  - FISTULA [None]
  - HEPATIC ENZYME INCREASED [None]
  - SINUSITIS [None]
